FAERS Safety Report 10059954 (Version 2)
Quarter: 2014Q2

REPORT INFORMATION
  Report Type: Report from Study
  Country: GR (occurrence: GR)
  Receive Date: 20140404
  Receipt Date: 20140424
  Transmission Date: 20141212
  Serious: Yes (Death, Life-Threatening)
  Sender: FDA-Public Use
  Company Number: GR-GLAXOSMITHKLINE-B0981648A

PATIENT
  Age: 59 Year
  Sex: Female
  Weight: 90 kg

DRUGS (4)
  1. ZANAMIVIR [Suspect]
     Indication: H1N1 INFLUENZA
     Route: 042
     Dates: start: 20140314, end: 20140319
  2. CANCIDAS [Suspect]
     Dosage: 35MG PER DAY
     Route: 042
     Dates: start: 20140313
  3. TMP/SMX [Suspect]
     Route: 042
     Dates: start: 20140314
  4. AMIODARONE [Suspect]
     Route: 042
     Dates: start: 20140308

REACTIONS (1)
  - Hepatic failure [Fatal]
